FAERS Safety Report 16852844 (Version 1)
Quarter: 2019Q3

REPORT INFORMATION
  Report Type: Spontaneous
  Country: US (occurrence: US)
  Receive Date: 20190925
  Receipt Date: 20190925
  Transmission Date: 20191005
  Serious: No
  Sender: FDA-Public Use
  Company Number: US-JNJFOC-20190925953

PATIENT
  Age: 46 Year
  Sex: Female
  Weight: 72.64 kg

DRUGS (2)
  1. INVEGA SUSTENNA [Suspect]
     Active Substance: PALIPERIDONE PALMITATE
     Indication: PRODUCT USED FOR UNKNOWN INDICATION
     Route: 030
     Dates: start: 20190917
  2. INVEGA [Suspect]
     Active Substance: PALIPERIDONE
     Indication: PRODUCT USED FOR UNKNOWN INDICATION
     Route: 048
     Dates: start: 20190905, end: 20190917

REACTIONS (7)
  - Insomnia [Unknown]
  - Feeling abnormal [Unknown]
  - Weight increased [Unknown]
  - Malnutrition [Unknown]
  - Discomfort [Unknown]
  - Tremor [Unknown]
  - Sensory disturbance [Unknown]

NARRATIVE: CASE EVENT DATE: 201909
